FAERS Safety Report 7002155-1 (Version None)
Quarter: 2010Q3

REPORT INFORMATION
  Report Type: 
  Country: None (occurrence: None)
  Receive Date: 20100920
  Receipt Date: 20100202
  Transmission Date: 20110219
  Serious: No
  Sender: FDA-Public Use
  Company Number: US-ASTRAZENECA-2010SE02052

PATIENT
  Age: 59 Year
  Sex: Female
  Weight: 103.9 kg

DRUGS (19)
  1. SEROQUEL XR [Suspect]
     Indication: BIPOLAR DISORDER
     Route: 048
     Dates: start: 20080101, end: 20100105
  2. SEROQUEL XR [Suspect]
     Route: 048
     Dates: start: 20100106, end: 20100108
  3. SEROQUEL XR [Suspect]
     Route: 048
     Dates: start: 20100109, end: 20100113
  4. CLONAZEPAM [Concomitant]
  5. CYMBALTA [Concomitant]
  6. LITHIUM [Concomitant]
  7. METHOTREXATE [Concomitant]
  8. FOLIC ACID [Concomitant]
  9. PHENOBARBITAL [Concomitant]
  10. PENTASA [Concomitant]
  11. LOVAZA [Concomitant]
  12. FEMARA [Concomitant]
  13. PANTOPRAZOLE [Concomitant]
  14. METOCLOPRAMIDE [Concomitant]
  15. CYTOMEL [Concomitant]
  16. SINGULAIR [Concomitant]
  17. ENBREL [Concomitant]
  18. DICYCLOMINE [Concomitant]
  19. METOPROLOL SUCCINATE [Concomitant]

REACTIONS (4)
  - DEPRESSION [None]
  - MEDICATION ERROR [None]
  - SINUSITIS [None]
  - WEIGHT INCREASED [None]
